FAERS Safety Report 10244636 (Version 1)
Quarter: 2014Q2

REPORT INFORMATION
  Report Type: Report from Study
  Country: CA (occurrence: CA)
  Receive Date: 20140618
  Receipt Date: 20140618
  Transmission Date: 20141212
  Serious: No
  Sender: FDA-Public Use
  Company Number: CA-BRISTOL-MYERS SQUIBB COMPANY-20999710

PATIENT
  Age: 39 Year
  Sex: Female

DRUGS (9)
  1. ORENCIA [Suspect]
     Indication: RHEUMATOID ARTHRITIS
     Route: 042
     Dates: start: 20091119
  2. FOLIC ACID [Concomitant]
  3. NORVASC [Concomitant]
  4. PLAQUENIL [Concomitant]
  5. SEROQUEL [Concomitant]
  6. AMITRIPTYLINE [Concomitant]
  7. VITAMIN B12 [Concomitant]
  8. SYNTHROID [Concomitant]
  9. PROZAC [Concomitant]

REACTIONS (1)
  - Obesity [Unknown]
